FAERS Safety Report 8208220-5 (Version None)
Quarter: 2012Q1

REPORT INFORMATION
  Report Type: 
  Country: None (occurrence: None)
  Receive Date: 20120314
  Receipt Date: 20120309
  Transmission Date: 20120608
  Serious: Yes (Death, Hospitalization)
  Sender: FDA-Public Use
  Company Number: PHEH2012US005052

PATIENT
  Sex: Female

DRUGS (12)
  1. HYDROCHLOROTHIAZIDE [Concomitant]
  2. PREDNISONE [Concomitant]
  3. NORVASC [Concomitant]
  4. NEULASTA [Concomitant]
  5. COMBIVENT [Concomitant]
  6. ARANESP [Concomitant]
  7. ZOCOR [Concomitant]
  8. ACETAMINOPHEN [Concomitant]
  9. EXJADE [Suspect]
     Indication: MYELODYSPLASTIC SYNDROME
     Dosage: 1000 MG, QD
     Route: 048
  10. EXJADE [Suspect]
     Indication: IRON OVERLOAD
  11. DUONEB [Concomitant]
  12. DECADRON [Concomitant]

REACTIONS (20)
  - CARDIO-RESPIRATORY ARREST [None]
  - RESPIRATORY ACIDOSIS [None]
  - TACHYCARDIA [None]
  - DRY THROAT [None]
  - FATIGUE [None]
  - PNEUMONIA [None]
  - PULMONARY OEDEMA [None]
  - BLOOD PRESSURE FLUCTUATION [None]
  - COUGH [None]
  - SPEECH DISORDER [None]
  - SEPTIC SHOCK [None]
  - HYPOTENSION [None]
  - DYSPNOEA [None]
  - RESPIRATORY FAILURE [None]
  - RESPIRATORY DISTRESS [None]
  - HYPOXIA [None]
  - METABOLIC ACIDOSIS [None]
  - HAEMORRHAGE [None]
  - CONFUSIONAL STATE [None]
  - BRADYCARDIA [None]
